FAERS Safety Report 7002433-6 (Version None)
Quarter: 2010Q3

REPORT INFORMATION
  Report Type: 
  Country: None (occurrence: None)
  Receive Date: 20100917
  Receipt Date: 20100917
  Transmission Date: 20110219
  Serious: Yes (Other)
  Sender: FDA-Public Use
  Company Number: None

PATIENT
  Sex: Female
  Weight: 65.9 kg

DRUGS (2)
  1. ENBREL [Suspect]
     Indication: ARTHRITIS
     Dosage: 50MG/ML 1XWEEK INTRAVENOUSLY
     Route: 042
     Dates: start: 19971201, end: 20070601
  2. ENBREL [Suspect]
     Indication: ARTHRITIS
     Dosage: 50MG/ML 1XWEEK INTRAVENOUSLY
     Route: 042
     Dates: start: 20071201, end: 20100301

REACTIONS (3)
  - ARTHRALGIA [None]
  - DISCOMFORT [None]
  - DYSSTASIA [None]
